FAERS Safety Report 10687968 (Version 4)
Quarter: 2015Q2

REPORT INFORMATION
  Report Type: Report from Study
  Country: US (occurrence: US)
  Receive Date: 20150102
  Receipt Date: 20150612
  Transmission Date: 20150821
  Serious: Yes (Death, Life-Threatening, Hospitalization, Other)
  Sender: FDA-Public Use
  Company Number: US-ASTELLAS-2014US020221

PATIENT
  Age: 64 Year
  Sex: Female

DRUGS (75)
  1. TACROLIMUS. [Suspect]
     Active Substance: TACROLIMUS
     Dosage: 0.4-1-MG-ONCE DAILY
     Route: 048
     Dates: start: 20141006, end: 20141129
  2. ACETAMINOPHEN. [Concomitant]
     Active Substance: ACETAMINOPHEN
     Indication: PREMEDICATION
     Route: 048
     Dates: start: 20140924
  3. TRAMADOL [Concomitant]
     Active Substance: TRAMADOL
     Indication: PAIN
     Dosage: 25-50 MG , AS NEEDED
     Route: 048
     Dates: start: 20141031, end: 20141120
  4. BUMETANIDE. [Concomitant]
     Active Substance: BUMETANIDE
     Indication: FLUID OVERLOAD
  5. BUMETANIDE. [Concomitant]
     Active Substance: BUMETANIDE
     Indication: PERIPHERAL SWELLING
  6. FENTANYL. [Concomitant]
     Active Substance: FENTANYL
     Indication: PROCTALGIA
     Dosage: 25-50-MCG-AS NEEDED
     Route: 042
     Dates: start: 20141029, end: 20141129
  7. SIMETHICONE [Concomitant]
     Active Substance: DIMETHICONE\SILICON DIOXIDE\SIMETHICONE
     Indication: ABDOMINAL DISTENSION
     Route: 048
     Dates: start: 20141031
  8. FOSCARNET [Concomitant]
     Active Substance: FOSCARNET
     Indication: VIRAEMIA
     Dosage: 1300-2975-MG-Q12H
     Route: 042
     Dates: start: 20141031
  9. FLAGYL [Concomitant]
     Active Substance: METRONIDAZOLE\METRONIDAZOLE HYDROCHLORIDE
     Indication: WOUND INFECTION
     Dosage: 1-APPLICATION-EVERY 6 HOURS
     Route: 061
     Dates: start: 20141104, end: 20141206
  10. POTASSIUM CHLORIDE. [Concomitant]
     Active Substance: POTASSIUM CHLORIDE
     Dosage: UNK UNK, UNKNOWN FREQ.
     Route: 048
     Dates: start: 20141006, end: 20141211
  11. PANTOPRAZOLE [Concomitant]
     Active Substance: PANTOPRAZOLE SODIUM
     Indication: PROPHYLAXIS
     Route: 048
     Dates: start: 20140925, end: 20141128
  12. CHLORHEXIDINE [Concomitant]
     Active Substance: CHLORHEXIDINE
     Indication: INFECTION PROPHYLAXIS
     Route: 050
     Dates: start: 20141112, end: 20141128
  13. TICARCILLIN/CLAVULANATE [Concomitant]
     Indication: STENOTROPHOMONAS INFECTION
  14. FLAGYL [Concomitant]
     Active Substance: METRONIDAZOLE\METRONIDAZOLE HYDROCHLORIDE
     Indication: WOUND INFECTION
     Dosage: 1-APPLICATION-Q6H
     Route: 061
     Dates: start: 20141104, end: 20141206
  15. PLACEBO [Suspect]
     Active Substance: UNSPECIFIED INGREDIENT
     Indication: PROPHYLAXIS
     Dosage: 1 TABLET, QD
     Route: 048
     Dates: start: 20140925, end: 20140926
  16. PLACEBO [Suspect]
     Active Substance: UNSPECIFIED INGREDIENT
     Dosage: 1 TABLET, QD
     Route: 048
     Dates: start: 20141027, end: 20141104
  17. DIPHENHYDRAMINE [Suspect]
     Active Substance: DIPHENHYDRAMINE
     Indication: PREMEDICATION
     Dosage: 25-50-MG, ONCE DAILY
     Route: 042
     Dates: start: 20141107, end: 20141211
  18. BUMETANIDE. [Concomitant]
     Active Substance: BUMETANIDE
     Indication: FLUID OVERLOAD
     Route: 048
     Dates: start: 20141114
  19. DAPTOMYCIN. [Concomitant]
     Active Substance: DAPTOMYCIN
     Indication: BACTERAEMIA
     Route: 042
     Dates: start: 20141102
  20. MAGNESIUM SULFATE. [Concomitant]
     Active Substance: MAGNESIUM SULFATE
     Indication: HYPOMAGNESAEMIA
     Route: 042
     Dates: start: 20141005, end: 20141210
  21. SARNA [Concomitant]
     Active Substance: CAMPHOR (NATURAL)\MENTHOL\PRAMOXINE HYDROCHLORIDE
     Indication: RASH PRURITIC
     Dosage: APPLICATION-APPLICATION-PRN
     Route: 061
     Dates: start: 20141109, end: 20141117
  22. ACETAMINOPHEN. [Concomitant]
     Active Substance: ACETAMINOPHEN
     Indication: PYREXIA
     Route: 048
     Dates: start: 20140924, end: 20141212
  23. NORMAL SALINE [Concomitant]
     Active Substance: SODIUM CHLORIDE
     Indication: FLUID REPLACEMENT
     Dosage: 250-1000-ML, AS NEEDED
     Route: 042
     Dates: start: 20140910, end: 20141212
  24. PROCHLORPERAZINE. [Concomitant]
     Active Substance: PROCHLORPERAZINE
     Indication: VOMITING
  25. MICAFUNGIN [Concomitant]
     Active Substance: MICAFUNGIN
     Indication: PULMONARY MASS
     Route: 042
     Dates: start: 20141102, end: 20141120
  26. DAPTOMYCIN. [Concomitant]
     Active Substance: DAPTOMYCIN
     Indication: STENOTROPHOMONAS INFECTION
     Route: 042
     Dates: start: 20141102, end: 20141119
  27. LIDOCAINE VISCOUS [Concomitant]
     Active Substance: LIDOCAINE HYDROCHLORIDE
     Indication: LIP PAIN
     Dosage: SWISH-MOUTHFUL-AS NEEDED
     Route: 050
     Dates: start: 20141107, end: 20141114
  28. OCEAN NASAL [Concomitant]
     Indication: PROPHYLAXIS
     Dosage: SPRAY-SPRAY-PRN
     Route: 045
     Dates: start: 20141106
  29. POTASSIUM CHLORIDE. [Concomitant]
     Active Substance: POTASSIUM CHLORIDE
     Dosage: UNK UNK, UNKNOWN FREQ.
     Route: 042
     Dates: start: 20141006, end: 20141210
  30. PRAMOXINE HC [Concomitant]
     Indication: PROCTALGIA
     Dosage: 1-APPLICATION-EVERY 12 HOURS
     Route: 061
     Dates: start: 20141109, end: 20141121
  31. FLAGYL [Concomitant]
     Active Substance: METRONIDAZOLE\METRONIDAZOLE HYDROCHLORIDE
     Indication: PYREXIA
     Route: 048
     Dates: start: 20141110, end: 20141120
  32. VORICONAZOLE. [Concomitant]
     Active Substance: VORICONAZOLE
     Indication: SINUSITIS
     Route: 048
     Dates: start: 20141026, end: 20141128
  33. BUMETANIDE. [Concomitant]
     Active Substance: BUMETANIDE
     Indication: PERIPHERAL SWELLING
     Dosage: 1-2-MG EVERY 12 HOURS
     Route: 048
     Dates: start: 20141114, end: 20141121
  34. LIDOCAINE VISCOUS [Concomitant]
     Active Substance: LIDOCAINE HYDROCHLORIDE
     Indication: LIP PAIN
     Dosage: SWISH-MOUTHFUL-AS NEEDED
     Route: 050
     Dates: start: 20141107
  35. ZINC OXIDE SIMPLE OINTMENT [Concomitant]
     Active Substance: ZINC OXIDE
     Indication: ANAL ULCER
     Dosage: APPLICATION-APPLICATION-PRN
     Route: 061
     Dates: start: 20141026
  36. NIFEDIPINE XL [Concomitant]
     Active Substance: NIFEDIPINE
     Route: 048
     Dates: start: 20141117, end: 20141121
  37. MOXIFLOXACIN [Concomitant]
     Active Substance: MOXIFLOXACIN
     Indication: INFECTION PROPHYLAXIS
     Route: 048
     Dates: start: 20141120
  38. POTASSIUM CHLORIDE. [Concomitant]
     Active Substance: POTASSIUM CHLORIDE
     Indication: HYPOKALAEMIA
     Route: 048
     Dates: start: 20141006, end: 20141211
  39. TACROLIMUS. [Suspect]
     Active Substance: TACROLIMUS
     Indication: IMMUNOSUPPRESSION
     Dosage: 0.5-1-MG-QD
     Route: 048
     Dates: start: 20141006, end: 20141129
  40. LEVOTHYROXINE [Concomitant]
     Active Substance: LEVOTHYROXINE
     Indication: HYPOTHYROIDISM
     Route: 048
     Dates: start: 20140925, end: 20141130
  41. MICAFUNGIN [Concomitant]
     Active Substance: MICAFUNGIN
     Indication: PULMONARY MASS
  42. FENTANYL. [Concomitant]
     Active Substance: FENTANYL
     Indication: LIP PAIN
     Dosage: 25-50-MCG-AS NEEDED
     Route: 042
     Dates: start: 20141029
  43. HYDRALAZINE [Concomitant]
     Active Substance: HYDRALAZINE HYDROCHLORIDE
     Indication: HYPERTENSION
     Route: 048
     Dates: start: 20141114
  44. TACROLIMUS. [Suspect]
     Active Substance: TACROLIMUS
     Dosage: 0.4-0.7 MG, ONCE DAILY
     Route: 048
     Dates: start: 20141130
  45. NORMAL SALINE [Concomitant]
     Active Substance: SODIUM CHLORIDE
     Indication: PROPHYLAXIS AGAINST DEHYDRATION
     Route: 042
     Dates: start: 20140911
  46. NORMAL SALINE [Concomitant]
     Active Substance: SODIUM CHLORIDE
     Indication: DEHYDRATION
     Route: 042
     Dates: start: 20140919
  47. LORAZEPAM. [Concomitant]
     Active Substance: LORAZEPAM
     Indication: NAUSEA
     Dosage: 0.5-1-MG, AS NEEDED
     Route: 042
     Dates: start: 20140918
  48. PROCHLORPERAZINE. [Concomitant]
     Active Substance: PROCHLORPERAZINE
     Indication: NAUSEA
     Route: 048
     Dates: start: 20140913
  49. OXYMETAZOLINE [Concomitant]
     Active Substance: OXYMETAZOLINE
     Indication: NASAL CONGESTION
     Dosage: 1-SPRAY ,EVERY 12 HOURS
     Route: 045
     Dates: start: 20141028
  50. LOPERAMIDE [Concomitant]
     Active Substance: LOPERAMIDE
     Indication: DIARRHOEA
     Route: 048
     Dates: start: 20141028
  51. SARNA                              /01326901/ [Concomitant]
     Indication: RASH PRURITIC
     Dosage: APPLICATION-APPLICATION-PRN
     Route: 061
     Dates: start: 20141109, end: 20141117
  52. HYDRALAZINE [Concomitant]
     Active Substance: HYDRALAZINE HYDROCHLORIDE
     Route: 048
     Dates: start: 20141114, end: 20141128
  53. BENZONATATE. [Concomitant]
     Active Substance: BENZONATATE
     Indication: COUGH
     Route: 048
     Dates: start: 20141121
  54. NIFEDIPINE XL [Concomitant]
     Active Substance: NIFEDIPINE
     Indication: HYPERTENSION
     Route: 048
     Dates: start: 20141117
  55. NYSTATIN. [Concomitant]
     Active Substance: NYSTATIN
     Indication: ANTIFUNGAL TREATMENT
     Dosage: 50000 U, EVERY 6 HOURS
     Route: 048
     Dates: start: 20140925, end: 20141128
  56. PRAMOXINE [Concomitant]
     Active Substance: PRAMOXINE
     Indication: PROCTALGIA
     Dosage: UNK, UNKNOWN FREQ.
     Route: 061
     Dates: start: 20141109, end: 20141121
  57. TICARCILLIN/CLAVULANATE [Concomitant]
     Indication: BACTERAEMIA
     Dosage: 2-G-Q4H
     Route: 042
     Dates: start: 20141028, end: 20141120
  58. TACROLIMUS. [Suspect]
     Active Substance: TACROLIMUS
  59. ONDANSETRON [Concomitant]
     Active Substance: ONDANSETRON
     Indication: ANTIEMETIC SUPPORTIVE CARE
     Dosage: 8-16-MG, AS NEEDED
     Route: 048
     Dates: start: 20140923
  60. MUPIROCIN. [Concomitant]
     Active Substance: MUPIROCIN
     Indication: INFECTION PROPHYLAXIS
     Dosage: APPLICATION-OINTMENT-QHS
     Route: 050
     Dates: start: 20141027, end: 20141120
  61. LOPERAMIDE [Concomitant]
     Active Substance: LOPERAMIDE
     Route: 048
     Dates: start: 20141028, end: 20141121
  62. MOXIFLOXACIN [Concomitant]
     Active Substance: MOXIFLOXACIN
     Indication: INFECTION PROPHYLAXIS
     Dosage: UNK, UNKNOWN FREQ.
     Route: 048
     Dates: start: 20141120, end: 20141120
  63. PLACEBO [Suspect]
     Active Substance: UNSPECIFIED INGREDIENT
     Dosage: 1 TABLET, QD
     Route: 048
     Dates: start: 20140929, end: 20141025
  64. NORMAL SALINE [Concomitant]
     Active Substance: SODIUM CHLORIDE
     Indication: HYPOTENSION
     Route: 042
     Dates: start: 20140910
  65. VORICONAZOLE. [Concomitant]
     Active Substance: VORICONAZOLE
     Route: 048
     Dates: start: 20141026, end: 20141128
  66. LEVOTHYROXINE [Concomitant]
     Active Substance: LEVOTHYROXINE
     Route: 048
     Dates: start: 20140925, end: 20141130
  67. TRAMADOL [Concomitant]
     Active Substance: TRAMADOL
     Dosage: 25-50-MG, AS NEEDED
     Route: 048
     Dates: start: 20141031, end: 20141120
  68. MUPIROCIN. [Concomitant]
     Active Substance: MUPIROCIN
     Indication: INFECTION PROPHYLAXIS
     Dosage: APPLICATION-OINTMENT-QHS
     Route: 050
     Dates: start: 20141027, end: 20141120
  69. DIBUCAINE                          /00164101/ [Concomitant]
     Indication: PROCTALGIA
     Dosage: APPLICATION-TOPICAL-Q12H
     Route: 061
     Dates: start: 20141027
  70. TICARCILLIN/CLAVULANATE POTASSIUM [Concomitant]
     Active Substance: CLAVULANATE POTASSIUM\TICARCILLIN
     Indication: BACTERAEMIA
     Dosage: 2-G-Q4H
     Route: 042
     Dates: start: 20141028
  71. TICARCILLIN/CLAVULANATE POTASSIUM [Concomitant]
     Active Substance: CLAVULANATE POTASSIUM\TICARCILLIN
     Indication: STENOTROPHOMONAS INFECTION
     Dosage: 2-G-Q4H
     Route: 042
     Dates: start: 20141028, end: 20141120
  72. TICARCILLIN/CLAVULANATE POTASSIUM [Concomitant]
     Active Substance: CLAVULANATE POTASSIUM\TICARCILLIN
     Indication: STENOTROPHOMONAS INFECTION
  73. FOSCARNET [Concomitant]
     Active Substance: FOSCARNET
     Indication: VIRAEMIA
     Dosage: 1300-2975-MG-EVERY 12 HOURS
     Route: 042
     Dates: start: 20141030, end: 20141212
  74. SARNA                              /01326901/ [Concomitant]
     Indication: RASH PRURITIC
     Dosage: APPLICATION-APPLICATION-PRN
     Route: 061
     Dates: start: 20141109
  75. FLAGYL [Concomitant]
     Active Substance: METRONIDAZOLE\METRONIDAZOLE HYDROCHLORIDE
     Indication: PYREXIA
     Route: 048
     Dates: start: 20141110, end: 20141120

REACTIONS (1)
  - Pulmonary alveolar haemorrhage [Fatal]

NARRATIVE: CASE EVENT DATE: 20141128
